FAERS Safety Report 9484793 (Version 1)
Quarter: 2013Q3

REPORT INFORMATION
  Report Type: Spontaneous
  Country: US (occurrence: US)
  Receive Date: 20130828
  Receipt Date: 20130828
  Transmission Date: 20140515
  Serious: Yes (Other)
  Sender: FDA-Public Use
  Company Number: US-AMGEN-USASP2011062777

PATIENT
  Age: 54 Year
  Sex: Male
  Weight: 99.77 kg

DRUGS (8)
  1. ENBREL [Suspect]
     Indication: PRODUCT USED FOR UNKNOWN INDICATION
     Dosage: 50 MG, QWK
     Route: 065
  2. FISH OIL [Concomitant]
  3. PRAVASTATIN [Concomitant]
     Dosage: 10 MG, UNK
  4. MULTIVITAMIN                       /00097801/ [Concomitant]
  5. AMLODIPINE [Concomitant]
     Dosage: 2.5 MG, UNK
  6. CO Q 10 [Concomitant]
  7. NOVOLOG [Concomitant]
     Dosage: UNK MEQ/ML, UNK
  8. LANTUS [Concomitant]
     Dosage: UNK MEQ/ML, UNK

REACTIONS (4)
  - Pancreatectomy [Unknown]
  - Hernia [Unknown]
  - Pancreatitis [Unknown]
  - Gallbladder disorder [Unknown]
